FAERS Safety Report 5646562-8 (Version None)
Quarter: 2008Q1

REPORT INFORMATION
  Report Type: 
  Country: None (occurrence: None)
  Receive Date: 20080131
  Receipt Date: 20071130
  Transmission Date: 20080703
  Serious: No
  Sender: FDA-Public Use
  Company Number: 163-21880-07120067

PATIENT
  Age: 66 Year
  Sex: Male

DRUGS (9)
  1. REVLIMID [Suspect]
     Indication: MULTIPLE MYELOMA
     Dosage: 25 MG, DAILY X 21 DAYS, ORAL
     Route: 047
     Dates: start: 20071116
  2. FELODIPINE [Suspect]
     Indication: DRUG USE FOR UNKNOWN INDICATION
  3. CARZEDILOL (CARZEDILOL) [Concomitant]
  4. HYDROCHLOROTHIAZIDE [Concomitant]
  5. LISINOPRIL [Concomitant]
  6. SIMVASTATIN [Concomitant]
  7. OMEPRAZOLE [Concomitant]
  8. METFORMIN HCL [Concomitant]
  9. MULTIVITAMIN [Concomitant]

REACTIONS (2)
  - BLOOD POTASSIUM DECREASED [None]
  - PRURITUS [None]
